FAERS Safety Report 10284743 (Version 3)
Quarter: 2015Q2

REPORT INFORMATION
  Report Type: Report from Study
  Country: ZA (occurrence: ZA)
  Receive Date: 20140708
  Receipt Date: 20150602
  Transmission Date: 20150821
  Serious: Yes (Other)
  Sender: FDA-Public Use
  Company Number: PHHY2014ZA083493

PATIENT
  Age: 55 Year
  Sex: Female

DRUGS (1)
  1. ACLASTA [Suspect]
     Active Substance: ZOLEDRONIC ACID
     Indication: OSTEOPOROSIS
     Dosage: 5 MG/100ML DAILY
     Route: 042
     Dates: start: 20130716

REACTIONS (7)
  - Loss of consciousness [Unknown]
  - Hypoaesthesia [Recovering/Resolving]
  - Sensory loss [Recovering/Resolving]
  - Paraesthesia [Unknown]
  - Drug intolerance [Unknown]
  - Hyperhidrosis [Unknown]
  - Anaesthesia [Unknown]

NARRATIVE: CASE EVENT DATE: 20130717
